FAERS Safety Report 6107377-X (Version None)
Quarter: 2009Q1

REPORT INFORMATION
  Report Type: 
  Country: None (occurrence: None)
  Receive Date: 20090309
  Receipt Date: 20090302
  Transmission Date: 20090719
  Serious: Yes (Other)
  Sender: FDA-Public Use
  Company Number: US-ASTRAZENECA-2009UW05760

PATIENT
  Age: 59 Year
  Sex: Female
  Weight: 67.6 kg

DRUGS (6)
  1. NEXIUM [Suspect]
     Indication: BARRETT'S OESOPHAGUS
     Route: 048
     Dates: start: 20030101
  2. FLEXERIL [Concomitant]
  3. HYDROCODONE BITARTRATE [Concomitant]
  4. DETROL [Concomitant]
  5. LYRICA [Concomitant]
  6. NEURONTIN [Concomitant]

REACTIONS (1)
  - SURGERY [None]
